FAERS Safety Report 19295265 (Version 2)
Quarter: 2021Q2

REPORT INFORMATION
  Report Type: Spontaneous
  Country: AR (occurrence: AR)
  Receive Date: 20210524
  Receipt Date: 20210602
  Transmission Date: 20210717
  Serious: Yes (Other)
  Sender: FDA-Public Use
  Company Number: AR-PFIZER INC-2021569163

PATIENT
  Age: 50 Year
  Sex: Male

DRUGS (1)
  1. SUTENT [Suspect]
     Active Substance: SUNITINIB MALATE
     Indication: METASTATIC RENAL CELL CARCINOMA
     Dosage: 50 MG (UNSPECIFIED SCHEME)
     Dates: start: 20181210

REACTIONS (7)
  - Poisoning [Unknown]
  - Pain in extremity [Unknown]
  - Erythema [Unknown]
  - Lung disorder [Unknown]
  - Drug intolerance [Unknown]
  - Intentional product misuse [Unknown]
  - Fatigue [Unknown]

NARRATIVE: CASE EVENT DATE: 2021
